FAERS Safety Report 13093671 (Version 1)
Quarter: 2017Q1

REPORT INFORMATION
  Report Type: Spontaneous
  Country: US (occurrence: US)
  Receive Date: 20170106
  Receipt Date: 20170106
  Transmission Date: 20170428
  Serious: No
  Sender: FDA-Public Use
  Company Number: US-BAYER-2017-002111

PATIENT
  Age: 48 Year
  Sex: Female

DRUGS (1)
  1. SKYLA [Suspect]
     Active Substance: LEVONORGESTREL
     Indication: VAGINAL HAEMORRHAGE
     Dosage: 14 MCG/24HR, CONT
     Route: 015
     Dates: start: 20160829, end: 20170102

REACTIONS (2)
  - Drug ineffective for unapproved indication [None]
  - Off label use [None]

NARRATIVE: CASE EVENT DATE: 20170102
